FAERS Safety Report 9057495 (Version 1)
Quarter: 2013Q1

REPORT INFORMATION
  Report Type: Spontaneous
  Country: US (occurrence: None)
  Receive Date: 20130204
  Receipt Date: 20130204
  Transmission Date: 20140127
  Serious: Yes (Other)
  Sender: FDA-Public Use
  Company Number: None

PATIENT
  Age: 59 Year
  Sex: Female
  Weight: 74.84 kg

DRUGS (2)
  1. BOTOX [Suspect]
     Dates: start: 20121210
  2. BOTOX [Concomitant]

REACTIONS (7)
  - Headache [None]
  - Oral mucosal erythema [None]
  - Stomatitis [None]
  - Pyrexia [None]
  - Oropharyngeal pain [None]
  - Odynophagia [None]
  - Lacrimation increased [None]
